FAERS Safety Report 5901865-4 (Version None)
Quarter: 2008Q3

REPORT INFORMATION
  Report Type: 
  Country: None (occurrence: None)
  Receive Date: 20080925
  Receipt Date: 20080911
  Transmission Date: 20090109
  Serious: Yes (Other)
  Sender: FDA-Public Use
  Company Number: 220005L08JPN

PATIENT
  Age: 17 Year
  Sex: Female
  Weight: 69.9 kg

DRUGS (9)
  1. SOMATROPIN (SOMATROPIN) [Suspect]
     Indication: LIPID METABOLISM DISORDER
     Dosage: 0.3 MG, 1 IN 1 DAYS
  2. SOMATROPIN (SOMATROPIN) [Suspect]
     Indication: OFF LABEL USE
     Dosage: 0.3 MG, 1 IN 1 DAYS
  3. HYDROCORTISONE (HYDROCORTISONE /00028601/) [Concomitant]
  4. L-T4 (LEVOTHYROXINE /00068001/) [Concomitant]
  5. HORMONE REPLACEMENT THERAPY DDAVP (DESMOPRESSIN ACETATE) [Concomitant]
  6. POTASSIUM CHLORIDE [Concomitant]
  7. SODIUM CHLORIDE [Concomitant]
  8. STATINS (HMG COA REDUCTASE INHIBITORS) [Concomitant]
  9. CLOFIBRATE [Concomitant]

REACTIONS (3)
  - DIABETES MELLITUS [None]
  - DISEASE RECURRENCE [None]
  - OFF LABEL USE [None]
